FAERS Safety Report 10091629 (Version 1)
Quarter: 2014Q2

REPORT INFORMATION
  Report Type: Spontaneous
  Country: US (occurrence: US)
  Receive Date: 20140421
  Receipt Date: 20140421
  Transmission Date: 20141212
  Serious: No
  Sender: FDA-Public Use
  Company Number: US-GILEAD-2012-0066418

PATIENT
  Age: 59 Year
  Sex: Male

DRUGS (13)
  1. LETAIRIS [Suspect]
     Indication: PRODUCT USED FOR UNKNOWN INDICATION
     Dosage: 5 MG, QD
     Route: 048
     Dates: start: 20080725
  2. METRONIDAZOLE [Concomitant]
  3. ATROVENT [Concomitant]
  4. ALBUTEROL                          /00139501/ [Concomitant]
  5. HYDROCODONE [Concomitant]
  6. ALPRAZOLAM [Concomitant]
  7. TRICOR                             /00090101/ [Concomitant]
  8. LISINOPRIL [Concomitant]
  9. FUROSEMIDE [Concomitant]
  10. ACIPHEX [Concomitant]
  11. GLIPIZIDE [Concomitant]
  12. SPIRONOLACTONE [Concomitant]
  13. SINGULAIR [Concomitant]

REACTIONS (1)
  - Headache [Unknown]
